FAERS Safety Report 6270641-8 (Version None)
Quarter: 2009Q3

REPORT INFORMATION
  Report Type: 
  Country: None (occurrence: None)
  Receive Date: 20090716
  Receipt Date: 20090708
  Transmission Date: 20100115
  Serious: Yes (Hospitalization)
  Sender: FDA-Public Use
  Company Number: US-GENENTECH-285179

PATIENT
  Sex: Male
  Weight: 99.32 kg

DRUGS (3)
  1. BEVACIZUMAB [Suspect]
     Indication: GLIOBLASTOMA MULTIFORME
     Dosage: 1035 MG, UNK
     Dates: start: 20090522
  2. TEMOZOLOMIDE [Concomitant]
     Indication: GLIOBLASTOMA MULTIFORME
  3. CHEMOTHERAPY (UNK INGREDIENTS) [Concomitant]
     Indication: GLIOBLASTOMA MULTIFORME

REACTIONS (3)
  - CONVULSION [None]
  - DECUBITUS ULCER [None]
  - HYPERHIDROSIS [None]
